FAERS Safety Report 4883755-1 (Version None)
Quarter: 2006Q1

REPORT INFORMATION
  Report Type: 
  Country: None (occurrence: None)
  Receive Date: 20060118
  Receipt Date: 20051104
  Transmission Date: 20060701
  Serious: Yes (Hospitalization)
  Sender: FDA-Public Use
  Company Number: FR-ROCHE-423674

PATIENT
  Age: 61 Year
  Sex: Female
  Weight: 75 kg

DRUGS (6)
  1. DACLIZUMAB [Suspect]
     Indication: RENAL TRANSPLANT
     Route: 042
     Dates: start: 20050709
  2. MYCOPHENOLATE MOFETIL [Suspect]
     Indication: RENAL TRANSPLANT
     Route: 048
     Dates: start: 20050709
  3. CYCLOSPORINE [Suspect]
     Indication: RENAL TRANSPLANT
     Route: 048
     Dates: start: 20050709
  4. CORTICOSTEROIDS [Suspect]
     Indication: RENAL TRANSPLANT
     Route: 048
     Dates: start: 20050709
  5. MOPRAL [Concomitant]
     Dates: start: 20050709
  6. LASILIX [Concomitant]
     Dates: start: 20050709

REACTIONS (1)
  - CHOLECYSTITIS [None]
